FAERS Safety Report 5469416-9 (Version None)
Quarter: 2007Q3

REPORT INFORMATION
  Report Type: 
  Country: None (occurrence: None)
  Receive Date: 20070925
  Receipt Date: 20070925
  Transmission Date: 20080115
  Serious: Yes (Other)
  Sender: FDA-Public Use
  Company Number: None

PATIENT
  Sex: Female
  Weight: 136.0791 kg

DRUGS (1)
  1. SEPTOCAINE [Suspect]
     Indication: ARTIFICIAL CROWN PROCEDURE
     Dates: start: 20070816, end: 20070816

REACTIONS (8)
  - BURNING SENSATION [None]
  - DYSGEUSIA [None]
  - HYPOAESTHESIA ORAL [None]
  - NERVE INJURY [None]
  - PARAESTHESIA ORAL [None]
  - SPEECH DISORDER [None]
  - SWOLLEN TONGUE [None]
  - TONGUE DISORDER [None]
